FAERS Safety Report 18790049 (Version 1)
Quarter: 2021Q1

REPORT INFORMATION
  Report Type: Spontaneous
  Country: US (occurrence: US)
  Receive Date: 20210126
  Receipt Date: 20210126
  Transmission Date: 20210419
  Serious: No
  Sender: FDA-Public Use
  Company Number: US-ABBVIE-20K-163-3694137-00

PATIENT
  Sex: Female

DRUGS (2)
  1. TRIDIONE [Suspect]
     Active Substance: TRIMETHADIONE
     Indication: GENERALISED TONIC-CLONIC SEIZURE
     Route: 065
     Dates: end: 2018
  2. TRIDIONE [Suspect]
     Active Substance: TRIMETHADIONE
     Indication: PETIT MAL EPILEPSY

REACTIONS (1)
  - Drug ineffective [Unknown]
